FAERS Safety Report 12581246 (Version 2)
Quarter: 2016Q3

REPORT INFORMATION
  Report Type: Spontaneous
  Country: GB (occurrence: GB)
  Receive Date: 20160721
  Receipt Date: 20160803
  Transmission Date: 20161109
  Serious: Yes (Other)
  Sender: FDA-Public Use
  Company Number: PHHY2016GB099627

PATIENT
  Age: 47 Year
  Sex: Female

DRUGS (1)
  1. TERBINAFINE. [Suspect]
     Active Substance: TERBINAFINE
     Indication: PRODUCT USED FOR UNKNOWN INDICATION
     Dosage: UNK
     Route: 065
     Dates: start: 20160623

REACTIONS (4)
  - Urticaria [Recovered/Resolved]
  - Lip swelling [Recovered/Resolved]
  - Peripheral swelling [Unknown]
  - Swelling [Unknown]

NARRATIVE: CASE EVENT DATE: 20160706
